FAERS Safety Report 8548035-1 (Version None)
Quarter: 2012Q3

REPORT INFORMATION
  Report Type: 
  Country: None (occurrence: None)
  Receive Date: 20120730
  Receipt Date: 20120725
  Transmission Date: 20120928
  Serious: Yes (Other)
  Sender: FDA-Public Use
  Company Number: CA-ROCHE-672187

PATIENT
  Sex: Female

DRUGS (3)
  1. KEPPRA [Concomitant]
     Indication: CONVULSION
     Dosage: INDICATION REPORTED AS ANTI-SEIZURE
  2. MABTHERA [Suspect]
     Indication: NON-HODGKIN'S LYMPHOMA
     Dosage: FORM: INFUSION
     Route: 042
  3. DILANTIN [Concomitant]

REACTIONS (9)
  - INJECTION SITE PAIN [None]
  - INJECTION SITE PRURITUS [None]
  - CATARACT [None]
  - OEDEMA PERIPHERAL [None]
  - PRURITUS [None]
  - PERIODONTAL DISEASE [None]
  - INJECTION SITE HAEMATOMA [None]
  - STRESS URINARY INCONTINENCE [None]
  - RECTAL DISCHARGE [None]
